FAERS Safety Report 20812336 (Version 4)
Quarter: 2022Q3

REPORT INFORMATION
  Report Type: Report from Study
  Country: US (occurrence: US)
  Receive Date: 20220511
  Receipt Date: 20220928
  Transmission Date: 20221026
  Serious: No
  Sender: FDA-Public Use
  Company Number: US-NOVARTISTESTPH-NVSC2022US108143

PATIENT
  Age: 45 Year
  Sex: Female

DRUGS (2)
  1. GLATOPA [Suspect]
     Active Substance: GLATIRAMER ACETATE
     Indication: Multiple sclerosis
     Dosage: 40 MG (EVERY 48 HOURS)
     Route: 058
     Dates: start: 20220101
  2. GLATOPA [Suspect]
     Active Substance: GLATIRAMER ACETATE
     Dosage: 40 MG (EVERY 48 HOURS)
     Route: 058
     Dates: start: 20220210

REACTIONS (10)
  - Head discomfort [Unknown]
  - Chest discomfort [Recovered/Resolved]
  - Lethargy [Unknown]
  - Nervousness [Unknown]
  - Chest pain [Recovered/Resolved]
  - Dyspnoea [Recovered/Resolved]
  - Adverse drug reaction [Unknown]
  - Device leakage [Unknown]
  - Device malfunction [Unknown]
  - Accidental exposure to product [Unknown]

NARRATIVE: CASE EVENT DATE: 20220509
